FAERS Safety Report 8453859 (Version 3)
Quarter: 2013Q4

REPORT INFORMATION
  Report Type: Spontaneous
  Country: AU (occurrence: AU)
  Receive Date: 20120312
  Receipt Date: 20131003
  Transmission Date: 20140711
  Serious: Yes (Death)
  Sender: FDA-Public Use
  Company Number: AU-PFIZER INC-2012062393

PATIENT
  Age: 61 Year
  Sex: Male

DRUGS (5)
  1. ATORVASTATIN CALCIUM [Suspect]
     Indication: DYSLIPIDAEMIA
     Dosage: 40 MG, DAILY
     Dates: start: 2006
  2. ASPIRIN [Concomitant]
     Dosage: 100 MG, DAILY
  3. METFORMIN [Concomitant]
     Dosage: 1 MG, BD
  4. COVERSYL PLUS [Concomitant]
     Dosage: [INDAPAMIDE 5MG]/[PERINDOPRIL ERBUMINE 12.5MG], MANE
  5. PRAZOSIN [Concomitant]
     Dosage: 2 MG, BD

REACTIONS (2)
  - Rhabdomyolysis [Fatal]
  - Respiratory failure [Fatal]
